FAERS Safety Report 7558002-2 (Version None)
Quarter: 2011Q2

REPORT INFORMATION
  Report Type: 
  Country: None (occurrence: None)
  Receive Date: 20110620
  Receipt Date: 20110607
  Transmission Date: 20111010
  Serious: Yes (Hospitalization)
  Sender: FDA-Public Use
  Company Number: US-JNJFOC-20110603836

PATIENT
  Sex: Female

DRUGS (2)
  1. REMICADE [Suspect]
     Indication: PANCREATITIS ACUTE
     Dosage: 4 VIALS
     Route: 042
  2. REMICADE [Suspect]
     Indication: COLITIS
     Dosage: 4 VIALS
     Route: 042

REACTIONS (1)
  - INVESTIGATION [None]
